FAERS Safety Report 19385928 (Version 1)
Quarter: 2021Q2

REPORT INFORMATION
  Report Type: Spontaneous
  Country: US (occurrence: US)
  Receive Date: 20210605
  Receipt Date: 20210605
  Transmission Date: 20210717
  Serious: Yes (Disabling, Other)
  Sender: FDA-Public Use
  Company Number: None

PATIENT
  Age: 49 Year
  Sex: Female
  Weight: 50.4 kg

DRUGS (1)
  1. BOTULINUM TOXIN TYPE A [Suspect]
     Active Substance: BOTULINUM TOXIN TYPE A
     Indication: SKIN WRINKLING
     Dosage: ?          QUANTITY:18 INJECTION(S);OTHER FREQUENCY:1 TIME TREATMENT;?
     Route: 058
     Dates: start: 20210512, end: 20210512

REACTIONS (7)
  - Illness [None]
  - Chest pain [None]
  - Bedridden [None]
  - Headache [None]
  - Dry mouth [None]
  - Insomnia [None]
  - Pain [None]

NARRATIVE: CASE EVENT DATE: 20210512
